FAERS Safety Report 24214517 (Version 1)
Quarter: 2024Q3

REPORT INFORMATION
  Report Type: Spontaneous
  Country: GB (occurrence: GB)
  Receive Date: 20240815
  Receipt Date: 20240815
  Transmission Date: 20241016
  Serious: Yes (Other)
  Sender: INCYTE
  Company Number: GB-002147023-NVSC2024GB163569

PATIENT

DRUGS (2)
  1. RUXOLITINIB [Suspect]
     Active Substance: RUXOLITINIB
     Indication: Myelofibrosis
     Dosage: 20 MG, BID
     Route: 065
     Dates: start: 202208
  2. RUXOLITINIB [Suspect]
     Active Substance: RUXOLITINIB
     Dosage: 15 MG, BID
     Route: 065

REACTIONS (12)
  - Bone pain [Recovering/Resolving]
  - Lower respiratory tract infection [Unknown]
  - COVID-19 [Unknown]
  - Night sweats [Recovered/Resolved]
  - Pruritus [Recovered/Resolved]
  - Herpes zoster [Unknown]
  - Splenomegaly [Unknown]
  - Weight increased [Unknown]
  - Urinary tract infection [Unknown]
  - Viral infection [Unknown]
  - Anaemia [Unknown]
  - Abdominal pain upper [Unknown]

NARRATIVE: CASE EVENT DATE: 20220801
